FAERS Safety Report 4872915-1 (Version None)
Quarter: 2006Q1

REPORT INFORMATION
  Report Type: 
  Country: None (occurrence: None)
  Receive Date: 20060105
  Receipt Date: 20050118
  Transmission Date: 20060701
  Serious: No
  Sender: FDA-Public Use
  Company Number: US-BRISTOL-MYERS SQUIBB COMPANY-12834172

PATIENT
  Sex: Male

DRUGS (8)
  1. SERZONE [Suspect]
     Dates: start: 20000825, end: 20020401
  2. SIMVASTATIN [Suspect]
  3. HYDROXYZINE PAMOATE [Concomitant]
  4. TERAZOSIN [Concomitant]
  5. DOCUSATE SODIUM [Concomitant]
  6. OXYCODONE [Concomitant]
  7. FLEXERIL [Concomitant]
  8. DARVOCET [Concomitant]

REACTIONS (4)
  - GINGIVAL BLEEDING [None]
  - HEART RATE IRREGULAR [None]
  - LIVER FUNCTION TEST ABNORMAL [None]
  - OEDEMA PERIPHERAL [None]
